FAERS Safety Report 8154861-3 (Version None)
Quarter: 2012Q1

REPORT INFORMATION
  Report Type: 
  Country: None (occurrence: None)
  Receive Date: 20120221
  Receipt Date: 20120215
  Transmission Date: 20120608
  Serious: Yes (Hospitalization)
  Sender: FDA-Public Use
  Company Number: PHHY2012BR013705

PATIENT
  Sex: Male

DRUGS (1)
  1. EXFORGE [Suspect]
     Indication: HYPERTENSION
     Dosage: 1 DF (320/5 MG), DAILY

REACTIONS (4)
  - CEREBROVASCULAR ACCIDENT [None]
  - MALAISE [None]
  - CEREBRAL ISCHAEMIA [None]
  - ACUTE MYOCARDIAL INFARCTION [None]
